FAERS Safety Report 13069944 (Version 2)
Quarter: 2017Q1

REPORT INFORMATION
  Report Type: Spontaneous
  Country: US (occurrence: US)
  Receive Date: 20161228
  Receipt Date: 20170103
  Transmission Date: 20170428
  Serious: No
  Sender: FDA-Public Use
  Company Number: US-BAXALTA-2016BLT009652

PATIENT
  Age: 36 Year
  Sex: Female

DRUGS (1)
  1. GAMMAGARD LIQUID [Suspect]
     Active Substance: HUMAN IMMUNOGLOBULIN G
     Indication: IMMUNODEFICIENCY
     Dosage: 10 G, 2X A WEEK
     Route: 058
     Dates: start: 20161222

REACTIONS (1)
  - Pyrexia [Not Recovered/Not Resolved]
